FAERS Safety Report 4985557-4 (Version None)
Quarter: 2006Q2

REPORT INFORMATION
  Report Type: 
  Country: None (occurrence: None)
  Receive Date: 20060428
  Receipt Date: 20020520
  Transmission Date: 20061013
  Serious: No
  Sender: FDA-Public Use
  Company Number: US-GLAXOSMITHKLINE-A0370827A

PATIENT
  Age: 62 Year
  Sex: Male

DRUGS (6)
  1. SEREVENT [Suspect]
     Indication: EMPHYSEMA
     Dosage: 2PUFF TWICE PER DAY
     Route: 055
     Dates: start: 20010101
  2. ADVAIR DISKUS 100/50 [Suspect]
     Indication: CHRONIC OBSTRUCTIVE PULMONARY DISEASE
     Dosage: 1PUFF TWICE PER DAY
     Route: 055
  3. ATROVENT [Concomitant]
  4. TRANXENE [Concomitant]
  5. COMBIVENT [Concomitant]
  6. MICARDIS [Concomitant]

REACTIONS (6)
  - BACK PAIN [None]
  - HYPOAESTHESIA [None]
  - MUSCLE ATROPHY [None]
  - MUSCULAR WEAKNESS [None]
  - NECK PAIN [None]
  - PHARYNGOLARYNGEAL PAIN [None]
